FAERS Safety Report 15167837 (Version 2)
Quarter: 2019Q1

REPORT INFORMATION
  Report Type: Spontaneous
  Country: SE (occurrence: SE)
  Receive Date: 20180719
  Receipt Date: 20190226
  Transmission Date: 20190417
  Serious: Yes (Hospitalization)
  Sender: FDA-Public Use
  Company Number: SE-TEVA-2018-SE-928112

PATIENT
  Age: 72 Year
  Sex: Female

DRUGS (14)
  1. METHOTREXATE. [Suspect]
     Active Substance: METHOTREXATE
     Indication: PSORIATIC ARTHROPATHY
     Dates: end: 20180516
  2. FOLIC ACID (HYDRATED) [Concomitant]
  3. SIMVASTATIN. [Concomitant]
     Active Substance: SIMVASTATIN
  4. COSENTYX [Suspect]
     Active Substance: SECUKINUMAB
     Indication: PSORIATIC ARTHROPATHY
     Dates: start: 20171130, end: 20180516
  5. AZOPT 10 MG/ML ?GONDROPPAR, SUSPENSION [Concomitant]
  6. ALVEDON 500 MG FILMDRAGERAD TABLETT [Concomitant]
  7. LOSARTAN. [Concomitant]
     Active Substance: LOSARTAN
  8. LATANOPROST. [Concomitant]
     Active Substance: LATANOPROST
  9. CANODERM 5 % KR?M [Concomitant]
  10. DESONIX 64 MIKROGRAM/DOS N?SSPRAY, SUSPENSION [Concomitant]
  11. MOVICOL  PULVER TILL ORAL L?SNING I DOSP?SE [Concomitant]
  12. SELOKENZOC 50 MG DEPOTTABLETT [Concomitant]
  13. SAROTEN 10 MG FILMDRAGERAD TABLETT [Concomitant]
  14. ELIQUIS 2,5 MG FILMDRAGERAD TABLETT [Concomitant]

REACTIONS (1)
  - Alveolitis allergic [Recovering/Resolving]

NARRATIVE: CASE EVENT DATE: 20180501
